FAERS Safety Report 9494075 (Version 1)
Quarter: 2013Q3

REPORT INFORMATION
  Report Type: Spontaneous
  Country: US (occurrence: None)
  Receive Date: 20130829
  Receipt Date: 20130829
  Transmission Date: 20140515
  Serious: Yes (Hospitalization)
  Sender: FDA-Public Use
  Company Number: None

PATIENT
  Age: 78 Year
  Sex: Male

DRUGS (5)
  1. WARFARIN [Suspect]
     Dosage: 4, QD, ORAL
     Route: 048
     Dates: start: 20130301, end: 20130828
  2. PANTOPRAZOLE [Concomitant]
  3. ADVAIR HFA [Concomitant]
  4. PROAIR HFA [Concomitant]
  5. SIMVASTATIN [Concomitant]

REACTIONS (1)
  - Haemorrhage [None]
